FAERS Safety Report 8523383-X (Version None)
Quarter: 2012Q3

REPORT INFORMATION
  Report Type: 
  Country: None (occurrence: None)
  Receive Date: 20120720
  Receipt Date: 20120712
  Transmission Date: 20120928
  Serious: Yes (Life-Threatening, Hospitalization)
  Sender: FDA-Public Use
  Company Number: US-BAYER-2012-071573

PATIENT
  Age: 33 Year
  Sex: Female
  Weight: 84.807 kg

DRUGS (16)
  1. DROSPIRENONE AND ETHINYL ESTRADIOL [Suspect]
  2. METADATE CD [Concomitant]
     Dosage: 20 MG,DAILY
     Route: 048
  3. DYAZIDE [Concomitant]
     Dosage: 37.5-25/DAILY
     Route: 048
  4. NAPROXEN [Concomitant]
     Dosage: 500 MG, PRN
     Route: 048
  5. LORATADINE [Concomitant]
     Dosage: 10 MG, DAILY
     Route: 048
  6. LAMICTAL [Concomitant]
     Dosage: AT DINNER
     Route: 048
  7. YASMIN [Suspect]
  8. POTASSIUM CHLORIDE [Concomitant]
     Dosage: DAILY
     Route: 048
  9. TRIAMTERENE AND HYDROCHLOROTHIAZIDE [Concomitant]
  10. BUPROPION HYDROCHLORIDE [Concomitant]
     Dosage: 150 MG, DAILY
     Route: 048
  11. GEODON [Concomitant]
     Dosage: 40 MG, AT DINNER
     Route: 048
  12. CALCIUM [Concomitant]
     Dosage: DAILY
     Route: 048
  13. TRIFLEX [Concomitant]
     Dosage: DAILY
     Route: 048
  14. MULTI-VITAMIN [Concomitant]
     Dosage: DAILY
     Route: 048
  15. COLON CARE [Concomitant]
     Dosage: DAILY
     Route: 048
  16. BUSPAR [Concomitant]
     Dosage: 7.5 MG/Q, HS
     Route: 048

REACTIONS (2)
  - PULMONARY INFARCTION [None]
  - PULMONARY EMBOLISM [None]
